FAERS Safety Report 4907312-3 (Version None)
Quarter: 2006Q1

REPORT INFORMATION
  Report Type: 
  Country: None (occurrence: None)
  Receive Date: 20060208
  Receipt Date: 20060208
  Transmission Date: 20060701
  Serious: Yes (Hospitalization)
  Sender: FDA-Public Use
  Company Number: None

PATIENT
  Age: 59 Year
  Sex: Male

DRUGS (14)
  1. ETODOLAC [Suspect]
     Indication: PAIN
     Dosage: 300 MG TID
     Dates: start: 20051024
  2. HYOSCYAMINE [Concomitant]
  3. PROMETHAZINE [Concomitant]
  4. BACLOFEN [Concomitant]
  5. DILTIAZEM HCL [Concomitant]
  6. FUROSEMIDE [Concomitant]
  7. METFORMIN [Concomitant]
  8. LOSARTAN POTASSIUM [Concomitant]
  9. ROSIGLITAZONE [Concomitant]
  10. TAMSULOSIN HCL [Concomitant]
  11. LIOTHYRONINE [Concomitant]
  12. VITAMIN E [Concomitant]
  13. LORAZEPAM [Concomitant]
  14. QUETIAPINE [Concomitant]

REACTIONS (2)
  - ABDOMINAL PAIN UPPER [None]
  - GASTROINTESTINAL PAIN [None]
